FAERS Safety Report 17408186 (Version 6)
Quarter: 2021Q1

REPORT INFORMATION
  Report Type: Spontaneous
  Country: US (occurrence: US)
  Receive Date: 20200212
  Receipt Date: 20210330
  Transmission Date: 20210419
  Serious: Yes (Other)
  Sender: FDA-Public Use
  Company Number: US-PFIZER INC-2020056683

PATIENT
  Age: 53 Year
  Sex: Female

DRUGS (1)
  1. XELJANZ [Suspect]
     Active Substance: TOFACITINIB CITRATE
     Dosage: 5 MG
     Dates: start: 20200206, end: 2020

REACTIONS (10)
  - Bronchitis viral [Unknown]
  - Chills [Unknown]
  - Product dose omission issue [Unknown]
  - Back pain [Not Recovered/Not Resolved]
  - Headache [Unknown]
  - Rheumatoid arthritis [Recovering/Resolving]
  - Upper respiratory tract infection [Recovering/Resolving]
  - Arthralgia [Not Recovered/Not Resolved]
  - COVID-19 [Unknown]
  - Memory impairment [Unknown]

NARRATIVE: CASE EVENT DATE: 2020
